FAERS Safety Report 21942189 (Version 3)
Quarter: 2023Q4

REPORT INFORMATION
  Report Type: Report from Study
  Country: PL (occurrence: PL)
  Receive Date: 20230202
  Receipt Date: 20231026
  Transmission Date: 20240110
  Serious: Yes (Death, Hospitalization)
  Sender: FDA-Public Use
  Company Number: PL-EXELIXIS-XL18423059447

PATIENT
  Age: 67 Year
  Sex: Male
  Weight: 65 kg

DRUGS (13)
  1. PLACEBO [Suspect]
     Active Substance: UNSPECIFIED INGREDIENT
     Indication: Renal cell carcinoma
     Dosage: ON 03 JAN 2023, THE PATIENT RECEIVED THE MOST RECENT DOSE OF BLINDED STUDY TREATMENT 20 MG QD PRIOR
     Route: 048
     Dates: start: 20210324, end: 20230103
  2. IPILIMUMAB [Suspect]
     Active Substance: IPILIMUMAB
     Indication: Renal cell carcinoma
     Dosage: Q3WEEKS X 4 DOSES?ON 26 MAY 2021, THE PATIENT RECEIVED THE MOST RECENT DOSE OF IPILIMUMAB PRIOR TO T
     Route: 042
     Dates: start: 20210324, end: 20210526
  3. PANTOPRAZOLE [Concomitant]
     Active Substance: PANTOPRAZOLE
     Indication: Product used for unknown indication
  4. BISEPTOL [Concomitant]
     Active Substance: SULFAMETHOXAZOLE\TRIMETHOPRIM
     Indication: Product used for unknown indication
  5. PREDNISONE [Concomitant]
     Active Substance: PREDNISONE
     Indication: Product used for unknown indication
     Dosage: UNKNOWN DOSE AND START DATE
  6. HYDROCORTISONE [Concomitant]
     Active Substance: HYDROCORTISONE
     Indication: Product used for unknown indication
     Dosage: UNKNOWN DOSE AND START DATE
  7. ACETAMINOPHEN [Concomitant]
     Active Substance: ACETAMINOPHEN
     Indication: Product used for unknown indication
     Dosage: UNKNOWN DOSE AND START DATE
  8. MAXIPULMON [Concomitant]
     Indication: Product used for unknown indication
     Dosage: UNKNOWN DOSE AND START DATE
  9. CALCIUM CARBONATE [Concomitant]
     Active Substance: CALCIUM CARBONATE
     Indication: Product used for unknown indication
     Dosage: UNKNOWN DOSE AND START DATE
  10. CALCINOL [CALCIUM CARBONATE;CALCIUM FLUORIDE;CALCIUM PHOSPHATE;COLECAL [Concomitant]
     Indication: Product used for unknown indication
     Dosage: UNKNOWN DOSE AND START DATE
  11. HEPAREGEN [Concomitant]
     Indication: Product used for unknown indication
     Dosage: UNKNOWN DOSE AND START DATE
  12. ALFACALCIDOL [Concomitant]
     Active Substance: ALFACALCIDOL
     Indication: Product used for unknown indication
     Dosage: UNKNOWN DOSE AND START DATE
  13. FLUDROCORTISONE [Concomitant]
     Active Substance: FLUDROCORTISONE
     Indication: Product used for unknown indication
     Dosage: UNKNOWN DOSE AND START DATE

REACTIONS (2)
  - Hypertransaminasaemia [Recovering/Resolving]
  - Death [Fatal]

NARRATIVE: CASE EVENT DATE: 20230104
